FAERS Safety Report 8013865-1 (Version None)
Quarter: 2011Q4

REPORT INFORMATION
  Report Type: 
  Country: None (occurrence: None)
  Receive Date: 20111229
  Receipt Date: 20111222
  Transmission Date: 20120403
  Serious: Yes (Hospitalization)
  Sender: FDA-Public Use
  Company Number: US-ROCHE-1025558

PATIENT
  Sex: Female

DRUGS (1)
  1. ZELBORAF [Suspect]
     Indication: NEOPLASM MALIGNANT
     Route: 048

REACTIONS (1)
  - CONVULSION [None]
